FAERS Safety Report 15536370 (Version 1)
Quarter: 2018Q4

REPORT INFORMATION
  Report Type: Spontaneous
  Country: BR (occurrence: BR)
  Receive Date: 20181022
  Receipt Date: 20181022
  Transmission Date: 20190205
  Serious: Yes (Hospitalization)
  Sender: FDA-Public Use
  Company Number: BR-SA-2018SA272234

PATIENT
  Sex: Female
  Weight: 58 kg

DRUGS (3)
  1. TAPAZOL [THIAMAZOLE] [Concomitant]
     Indication: TYPE 1 DIABETES MELLITUS
     Dosage: 1 DF, QD
     Route: 048
     Dates: start: 20160205
  2. APIDRA [Suspect]
     Active Substance: INSULIN GLULISINE
     Indication: TYPE 1 DIABETES MELLITUS
     Dosage: UNK,IN ACCORDANCE TO CARBOHYDRATES
     Route: 058
     Dates: start: 20180406, end: 20180930
  3. LANTUS [Concomitant]
     Active Substance: INSULIN GLARGINE
     Indication: TYPE 1 DIABETES MELLITUS
     Dosage: 34 IU, QD
     Route: 058
     Dates: start: 20160205

REACTIONS (8)
  - Drug ineffective [Unknown]
  - Hyperglycaemia [Recovering/Resolving]
  - Nausea [Recovering/Resolving]
  - Asthenia [Recovering/Resolving]
  - Tachycardia [Recovering/Resolving]
  - Dizziness [Recovering/Resolving]
  - Blood glucose decreased [Recovering/Resolving]
  - Blood glucose abnormal [Recovering/Resolving]

NARRATIVE: CASE EVENT DATE: 2018
